FAERS Safety Report 24879620 (Version 1)
Quarter: 2025Q1

REPORT INFORMATION
  Report Type: Spontaneous
  Country: US (occurrence: US)
  Receive Date: 20250123
  Receipt Date: 20250123
  Transmission Date: 20250409
  Serious: Yes (Hospitalization)
  Sender: CATALYST PHARMA
  Company Number: US-CATALYST PHARMACEUTICALS, INC-US-CATA-25-00078

PATIENT
  Age: 44 Year
  Sex: Female
  Weight: 66.689 kg

DRUGS (3)
  1. FIRDAPSE [Suspect]
     Active Substance: AMIFAMPRIDINE PHOSPHATE
     Indication: Myasthenic syndrome
     Dosage: 1 TABLET BY MOUTH FOUR TIMES A DAY
     Route: 048
     Dates: start: 20190214
  2. MELATONIN GUMMIES [Concomitant]
     Indication: Insomnia
     Route: 065
  3. ESTRADIOL [Concomitant]
     Active Substance: ESTRADIOL
     Indication: Hormone replacement therapy
     Dosage: 0.05 MG WEEKLY
     Route: 065

REACTIONS (3)
  - Hysterectomy [Recovered/Resolved]
  - Nausea [Recovered/Resolved]
  - Adverse event [Recovered/Resolved]

NARRATIVE: CASE EVENT DATE: 20250107
